FAERS Safety Report 13985427 (Version 3)
Quarter: 2018Q3

REPORT INFORMATION
  Report Type: Report from Study
  Country: CO (occurrence: CO)
  Receive Date: 20170919
  Receipt Date: 20180719
  Transmission Date: 20181010
  Serious: Yes (Hospitalization)
  Sender: FDA-Public Use
  Company Number: CO-ROCHE-1994178

PATIENT
  Age: 64 Year
  Sex: Female
  Weight: 60 kg

DRUGS (6)
  1. SERETIDE [Concomitant]
     Active Substance: FLUTICASONE PROPIONATE\SALMETEROL XINAFOATE
     Indication: ASTHMA
     Dosage: 2 DF, QD (IN THE MORNING AND AT NIGHT)
     Route: 055
  2. MONTELUKAST SODIUM. [Concomitant]
     Active Substance: MONTELUKAST SODIUM
     Indication: ASTHMA
     Dosage: 10 MG, UNK (2 YEARS AGO)
     Route: 048
  3. SALBUTAMOL [Concomitant]
     Active Substance: ALBUTEROL
     Indication: ASTHMA
     Dosage: (WHEN SHE HAS A CHOKING SENSATION)
     Route: 055
  4. XOLAIR [Suspect]
     Active Substance: OMALIZUMAB
     Indication: ASTHMA
     Route: 058
     Dates: start: 20160913
  5. XOLAIR [Suspect]
     Active Substance: OMALIZUMAB
     Route: 058
     Dates: start: 201706, end: 201801
  6. NIFEDIPINE. [Concomitant]
     Active Substance: NIFEDIPINE
     Indication: HYPERTENSION
     Dosage: 1 DF, QD
     Route: 048

REACTIONS (5)
  - Secretion discharge [Unknown]
  - Sputum discoloured [Recovering/Resolving]
  - White blood cell count increased [Unknown]
  - Sputum increased [Not Recovered/Not Resolved]
  - Increased viscosity of bronchial secretion [Not Recovered/Not Resolved]

NARRATIVE: CASE EVENT DATE: 20170611
